FAERS Safety Report 8223049-X (Version None)
Quarter: 2012Q1

REPORT INFORMATION
  Report Type: 
  Country: None (occurrence: None)
  Receive Date: 20120321
  Receipt Date: 20120309
  Transmission Date: 20120608
  Serious: Yes (Other)
  Sender: FDA-Public Use
  Company Number: FR-BRISTOL-MYERS SQUIBB COMPANY-16304925

PATIENT
  Age: 4 Decade
  Sex: Female

DRUGS (1)
  1. CEFEPIME [Suspect]
     Indication: PROPHYLAXIS
     Dosage: 10ML SOLVENT (5ML)INSTEAD OF6ML,16DEC11 4ML SOLVENT:2ML INSTEAD OF 6ML
     Route: 030
     Dates: start: 20111215

REACTIONS (2)
  - OFF LABEL USE [None]
  - INJECTION SITE PAIN [None]
